FAERS Safety Report 15785495 (Version 1)
Quarter: 2018Q4

REPORT INFORMATION
  Report Type: Spontaneous
  Country: US (occurrence: US)
  Receive Date: 20181228
  Receipt Date: 20181228
  Transmission Date: 20190205
  Serious: No
  Sender: FDA-Public Use
  Company Number: None

PATIENT

DRUGS (2)
  1. LIDOCAINE 2% [Suspect]
     Active Substance: LIDOCAINE
  2. BUPIVACAINE 0.5% [Suspect]
     Active Substance: BUPIVACAINE

REACTIONS (2)
  - Product label confusion [None]
  - Wrong product stored [None]
